FAERS Safety Report 6971807-1 (Version None)
Quarter: 2010Q3

REPORT INFORMATION
  Report Type: 
  Country: None (occurrence: None)
  Receive Date: 20100908
  Receipt Date: 20100831
  Transmission Date: 20110219
  Serious: Yes (Other)
  Sender: FDA-Public Use
  Company Number: US-AMGEN-QUU417202

PATIENT
  Sex: Female

DRUGS (2)
  1. NPLATE [Suspect]
     Indication: THROMBOCYTOPENIA
     Dates: start: 20090914
  2. CORTICOSTEROIDS [Concomitant]
     Dates: start: 20070101

REACTIONS (4)
  - LEUKOPENIA [None]
  - MICROCYTIC ANAEMIA [None]
  - PANCYTOPENIA [None]
  - THROMBOCYTOPENIA [None]
